FAERS Safety Report 14782776 (Version 1)
Quarter: 2018Q2

REPORT INFORMATION
  Report Type: Spontaneous
  Country: US (occurrence: US)
  Receive Date: 20180420
  Receipt Date: 20180420
  Transmission Date: 20180711
  Serious: No
  Sender: FDA-Public Use
  Company Number: US-ASTRAZENECA-2018SE46166

PATIENT
  Age: 28451 Day
  Sex: Male
  Weight: 93 kg

DRUGS (4)
  1. BRILINTA [Suspect]
     Active Substance: TICAGRELOR
     Indication: STENT PLACEMENT
     Route: 048
     Dates: start: 20180403
  2. CANDESARTAN. [Suspect]
     Active Substance: CANDESARTAN
     Indication: BLOOD PRESSURE MEASUREMENT
     Route: 048
  3. BABY ASPIRIN [Concomitant]
     Active Substance: ASPIRIN
     Dosage: 81.0MG UNKNOWN
  4. CRESTOR [Suspect]
     Active Substance: ROSUVASTATIN CALCIUM
     Indication: PROPHYLAXIS
     Dosage: DAILY
     Route: 048

REACTIONS (4)
  - Dizziness [Not Recovered/Not Resolved]
  - Gait disturbance [Unknown]
  - Fatigue [Recovering/Resolving]
  - Anxiety [Unknown]
